FAERS Safety Report 6719755-6 (Version None)
Quarter: 2010Q2

REPORT INFORMATION
  Report Type: 
  Country: None (occurrence: None)
  Receive Date: 20100511
  Receipt Date: 20100506
  Transmission Date: 20101027
  Serious: Yes (Death)
  Sender: FDA-Public Use
  Company Number: A0855954A

PATIENT
  Age: 85 Year
  Sex: Male

DRUGS (2)
  1. PROMACTA [Suspect]
     Dosage: 75MG PER DAY
     Route: 048
     Dates: start: 20090501, end: 20091026
  2. CORTICOSTEROIDS [Concomitant]

REACTIONS (2)
  - DRUG INEFFECTIVE [None]
  - MYELODYSPLASTIC SYNDROME [None]
